FAERS Safety Report 7305320-9 (Version None)
Quarter: 2011Q1

REPORT INFORMATION
  Report Type: 
  Country: None (occurrence: None)
  Receive Date: 20110222
  Receipt Date: 20110204
  Transmission Date: 20110831
  Serious: Yes (Hospitalization)
  Sender: FDA-Public Use
  Company Number: US-ASTRAZENECA-2011SE06716

PATIENT
  Age: 53 Year
  Sex: Male
  Weight: 136.1 kg

DRUGS (1)
  1. SYMBICORT [Suspect]
     Dosage: 160/4.5 UG BID
     Route: 055

REACTIONS (2)
  - CHRONIC OBSTRUCTIVE PULMONARY DISEASE [None]
  - CHEST DISCOMFORT [None]
